FAERS Safety Report 10700036 (Version 3)
Quarter: 2015Q1

REPORT INFORMATION
  Report Type: Spontaneous
  Country: FR (occurrence: FR)
  Receive Date: 20150109
  Receipt Date: 20150313
  Transmission Date: 20150721
  Serious: Yes (Life-Threatening)
  Sender: FDA-Public Use
  Company Number: FR-JNJFOC-20141220471

PATIENT
  Age: 79 Year
  Sex: Female
  Weight: 93 kg

DRUGS (7)
  1. TRAMADOL [Concomitant]
     Active Substance: TRAMADOL
     Route: 065
  2. SOFOSBUVIR [Suspect]
     Active Substance: SOFOSBUVIR
     Indication: HEPATITIS C
     Route: 048
     Dates: start: 20141111, end: 20141118
  3. OLYSIO [Suspect]
     Active Substance: SIMEPREVIR
     Indication: HEPATIC CIRRHOSIS
     Route: 048
     Dates: start: 20141111, end: 20141118
  4. SOFOSBUVIR [Suspect]
     Active Substance: SOFOSBUVIR
     Indication: HEPATIC CIRRHOSIS
     Route: 048
     Dates: start: 20141111, end: 20141118
  5. OLYSIO [Suspect]
     Active Substance: SIMEPREVIR
     Indication: HEPATITIS C
     Route: 048
     Dates: start: 20141111, end: 20141118
  6. LYRICA [Concomitant]
     Active Substance: PREGABALIN
     Dosage: INITIATED RECENTLY
     Route: 065
  7. AMLOR [Interacting]
     Active Substance: AMLODIPINE BESYLATE
     Indication: PRODUCT USED FOR UNKNOWN INDICATION
     Dosage: LONG TERM TREATMENT
     Route: 048

REACTIONS (5)
  - Drug interaction [Unknown]
  - Oedema [Recovered/Resolved]
  - Overdose [Unknown]
  - Dyspnoea [Recovered/Resolved]
  - Generalised oedema [Unknown]

NARRATIVE: CASE EVENT DATE: 20141118
